FAERS Safety Report 8887107 (Version 45)
Quarter: 2014Q3

REPORT INFORMATION
  Report Type: Report from Study
  Country: AU (occurrence: AU)
  Receive Date: 20121105
  Receipt Date: 20140916
  Transmission Date: 20150326
  Serious: Yes (Other)
  Sender: FDA-Public Use
  Company Number: PHHY2012AU099844

PATIENT
  Age: 43 Year
  Sex: Male
  Weight: 107 kg

DRUGS (12)
  1. CITALOPRAM [Concomitant]
     Active Substance: CITALOPRAM HYDROBROMIDE
     Dosage: 10 MG, QD (AT MORNING)
  2. CLOZARIL [Suspect]
     Active Substance: CLOZAPINE
     Dosage: 500 MG
     Route: 048
  3. CLOZARIL [Suspect]
     Active Substance: CLOZAPINE
     Dosage: 375 MG
     Route: 048
  4. CLOZARIL [Suspect]
     Active Substance: CLOZAPINE
     Dosage: 550 MG, DAILY (50 MG MORNING AND 500 MG NIGHT)
     Route: 048
     Dates: start: 20120821
  5. CLOZARIL [Suspect]
     Active Substance: CLOZAPINE
     Indication: SCHIZOPHRENIA, PARANOID TYPE
     Dosage: 375 MG
     Route: 048
     Dates: start: 19981005
  6. ARIPIPRAZOLE [Concomitant]
     Active Substance: ARIPIPRAZOLE
     Indication: DRUG EFFECT INCREASED
     Dosage: 15 MG, UNK
     Dates: start: 20121026
  7. ARIPIPRAZOLE [Concomitant]
     Active Substance: ARIPIPRAZOLE
     Indication: SCHIZOPHRENIA, PARANOID TYPE
     Dosage: 7.5 MG, UNK
     Dates: start: 20120924
  8. CLOZARIL [Suspect]
     Active Substance: CLOZAPINE
     Dosage: 525 MG
     Route: 048
     Dates: start: 20120924
  9. CLOZARIL [Suspect]
     Active Substance: CLOZAPINE
     Dosage: 400 MG
     Route: 048
     Dates: start: 20121026
  10. CLOZARIL [Suspect]
     Active Substance: CLOZAPINE
     Dosage: 500 MG
     Route: 048
     Dates: start: 20110520
  11. ARIPIPRAZOLE [Concomitant]
     Active Substance: ARIPIPRAZOLE
     Dosage: 20 MG, DAILY
  12. CITALOPRAM [Concomitant]
     Active Substance: CITALOPRAM HYDROBROMIDE
     Dates: end: 20131010

REACTIONS (21)
  - White blood cell count decreased [Not Recovered/Not Resolved]
  - Hallucination, auditory [Unknown]
  - Hepatitis C [Unknown]
  - Pulmonary valve incompetence [Unknown]
  - Tricuspid valve incompetence [Unknown]
  - Bundle branch block right [Unknown]
  - Ideas of reference [Unknown]
  - Antipsychotic drug level decreased [Unknown]
  - Neutropenia [Recovered/Resolved]
  - Heart valve incompetence [Unknown]
  - Mitral valve incompetence [Unknown]
  - Insomnia [Unknown]
  - Aortic valve incompetence [Unknown]
  - Schizophrenia [Unknown]
  - Pancytopenia [Unknown]
  - Paranoia [Unknown]
  - Sinus tachycardia [Unknown]
  - Salivary hypersecretion [Unknown]
  - Left ventricular hypertrophy [Unknown]
  - Electrocardiogram QT prolonged [Recovered/Resolved]
  - Agitation [Unknown]

NARRATIVE: CASE EVENT DATE: 20110520
